FAERS Safety Report 4389345-1 (Version None)
Quarter: 2004Q3

REPORT INFORMATION
  Report Type: 
  Country: None (occurrence: None)
  Receive Date: 20040702
  Receipt Date: 20040622
  Transmission Date: 20050211
  Serious: Yes (Hospitalization)
  Sender: FDA-Public Use
  Company Number: DE-AMGEN-UK081155

PATIENT
  Sex: Female

DRUGS (3)
  1. NEULASTA [Suspect]
     Indication: CHEMOTHERAPY
     Route: 065
  2. EPIRUBICIN [Concomitant]
  3. PACLITAXEL [Concomitant]

REACTIONS (3)
  - DRUG INEFFECTIVE [None]
  - LEUKOPENIA [None]
  - THERAPEUTIC RESPONSE DECREASED [None]
